FAERS Safety Report 24659414 (Version 1)
Quarter: 2024Q4

REPORT INFORMATION
  Report Type: Spontaneous
  Country: FR (occurrence: FR)
  Receive Date: 20241125
  Receipt Date: 20241125
  Transmission Date: 20250114
  Serious: Yes (Death, Other)
  Sender: PFIZER
  Company Number: None

PATIENT
  Age: 76 Year
  Sex: Female
  Weight: 73.3 kg

DRUGS (4)
  1. PACLITAXEL [Suspect]
     Active Substance: PACLITAXEL
     Indication: Endometrial cancer metastatic
     Dosage: 310 MG, SINGLE
     Route: 042
     Dates: start: 20241004, end: 20241004
  2. CARBOPLATIN [Suspect]
     Active Substance: CARBOPLATIN
     Indication: Endometrial cancer metastatic
     Dosage: 642 MG, SINGLE
     Route: 042
     Dates: start: 20241004, end: 20241004
  3. JEMPERLI [Suspect]
     Active Substance: DOSTARLIMAB\DOSTARLIMAB-GXLY
     Indication: Endometrial cancer metastatic
     Dosage: 500 MG, SINGLE
     Route: 042
     Dates: start: 20241004, end: 20241004
  4. LEVOTHYROXINE [Concomitant]
     Active Substance: LEVOTHYROXINE
     Dosage: UNK

REACTIONS (2)
  - Hepatitis acute [Fatal]
  - Off label use [Unknown]

NARRATIVE: CASE EVENT DATE: 20241004
